FAERS Safety Report 10614810 (Version 2)
Quarter: 2014Q4

REPORT INFORMATION
  Report Type: Spontaneous
  Country: IT (occurrence: IT)
  Receive Date: 20141201
  Receipt Date: 20141204
  Transmission Date: 20150529
  Serious: Yes (Hospitalization)
  Sender: FDA-Public Use
  Company Number: IT-ORION CORPORATION ORION PHARMA-ENTC2014-0416

PATIENT
  Age: 84 Year
  Sex: Female

DRUGS (12)
  1. TORVAST [Concomitant]
     Active Substance: ATORVASTATIN
     Dosage: STRENGTH: 40 MG
     Route: 048
  2. ASPIRINETTA [Concomitant]
     Active Substance: ASPIRIN
     Dosage: STRENGTH: 100 MG
     Route: 065
  3. STALEVO [Suspect]
     Active Substance: CARBIDOPA\ENTACAPONE\LEVODOPA
     Indication: PARKINSON^S DISEASE
     Dosage: STRENGTH: 200/50/200 MG
     Route: 048
     Dates: start: 20141001, end: 20141103
  4. REMERON [Concomitant]
     Active Substance: MIRTAZAPINE
     Dosage: STRENGTH: 6 MG
     Route: 048
     Dates: start: 20140101, end: 20141103
  5. MODURETIC 5-50 [Concomitant]
     Active Substance: AMILORIDE HYDROCHLORIDE\HYDROCHLOROTHIAZIDE
     Dosage: STRENGTH: 5 + 50 MG
     Route: 065
  6. SELOKEN [Concomitant]
     Active Substance: METOPROLOL
     Dosage: STRENGTH: 100 MG
     Route: 065
  7. STILNOX [Concomitant]
     Active Substance: ZOLPIDEM TARTRATE
     Dosage: STRENGTH: 10 MG
     Route: 065
  8. NEUPRO [Suspect]
     Active Substance: ROTIGOTINE
     Indication: PARKINSON^S DISEASE
     Dosage: STRENGTH: 2 MG
     Route: 062
     Dates: start: 20140601, end: 20141103
  9. JUMEX [Interacting]
     Active Substance: SELEGILINE HYDROCHLORIDE
     Indication: PARKINSON^S DISEASE
     Dosage: STRENGTH: 5 MG
     Route: 048
     Dates: start: 20140101, end: 20141103
  10. PLAQUENIL [Concomitant]
     Active Substance: HYDROXYCHLOROQUINE SULFATE
     Dosage: STRENGTH: 200 MG
     Route: 048
  11. MEPRAL [Concomitant]
     Active Substance: OMEPRAZOLE SODIUM
     Dosage: STRENGTH: 20 MG
     Route: 065
  12. LOSARTAN POTASSIUM AND HYDROCHLOROTHIAZIDE [Concomitant]
     Active Substance: HYDROCHLOROTHIAZIDE\LOSARTAN POTASSIUM
     Dosage: STRENGTH: 100 + 25 MG
     Route: 065

REACTIONS (2)
  - Drug interaction [Recovered/Resolved]
  - Hallucination [Recovered/Resolved]

NARRATIVE: CASE EVENT DATE: 20141103
